FAERS Safety Report 5242248-2 (Version None)
Quarter: 2007Q1

REPORT INFORMATION
  Report Type: 
  Country: None (occurrence: None)
  Receive Date: 20070216
  Receipt Date: 20070216
  Transmission Date: 20070707
  Serious: Yes (Hospitalization)
  Sender: FDA-Public Use
  Company Number: None

PATIENT
  Age: 71 Year
  Sex: Male
  Weight: 80 kg

DRUGS (5)
  1. RITUXAN [Suspect]
     Indication: CHRONIC LYMPHOCYTIC LEUKAEMIA
     Dosage: Q 2 MONTHS IV
     Route: 042
     Dates: start: 20060101, end: 20070214
  2. FLOMAX [Concomitant]
  3. ALLEGRA [Concomitant]
  4. LIPITOR [Concomitant]
  5. CYTOXAN [Concomitant]

REACTIONS (1)
  - GLOBAL AMNESIA [None]
